FAERS Safety Report 10066780 (Version 1)
Quarter: 2014Q2

REPORT INFORMATION
  Report Type: Report from Study
  Country: ZA (occurrence: ZA)
  Receive Date: 20140408
  Receipt Date: 20140408
  Transmission Date: 20141212
  Serious: Yes (Life-Threatening)
  Sender: FDA-Public Use
  Company Number: PHHY2014ZA041731

PATIENT
  Sex: Female

DRUGS (1)
  1. ACLASTA [Suspect]
     Indication: OSTEOPOROSIS
     Dosage: 5 MG/100ML, UNK
     Route: 042
     Dates: start: 20140327

REACTIONS (5)
  - Feeling abnormal [Unknown]
  - Skin discolouration [Unknown]
  - Movement disorder [Unknown]
  - Oedema peripheral [Unknown]
  - Arthritis [Unknown]
